FAERS Safety Report 4313054-8 (Version None)
Quarter: 2004Q1

REPORT INFORMATION
  Report Type: 
  Country: None (occurrence: None)
  Receive Date: 20040308
  Receipt Date: 20040227
  Transmission Date: 20041129
  Serious: Yes (Hospitalization)
  Sender: FDA-Public Use
  Company Number: US-BRISTOL-MYERS SQUIBB COMPANY-12518957

PATIENT
  Age: 36 Year
  Sex: Female
  Weight: 54 kg

DRUGS (4)
  1. SERZONE [Suspect]
     Route: 048
     Dates: start: 19960201, end: 19960701
  2. SOMA COMPOUND [Suspect]
     Dosage: ONCE OR TWICE A DAY FOR SEVERAL WEEKS PRIOR TO 1-AUG-96
  3. SOMA COMPOUND W/CODEINE [Suspect]
     Dosage: ONCE OR TWICE A DAY FOR SEVERAL WEEKS PRIOR TO 1-AUG-96
  4. PREMARIN [Concomitant]

REACTIONS (2)
  - HEPATIC FAILURE [None]
  - RASH [None]
